FAERS Safety Report 16022902 (Version 1)
Quarter: 2019Q1

REPORT INFORMATION
  Report Type: Spontaneous
  Country: US (occurrence: US)
  Receive Date: 20190301
  Receipt Date: 20190301
  Transmission Date: 20190418
  Serious: No
  Sender: FDA-Public Use
  Company Number: US-ASTRAZENECA-2019SE20028

PATIENT
  Sex: Male
  Weight: 97.5 kg

DRUGS (1)
  1. BYDUREON [Suspect]
     Active Substance: EXENATIDE
     Route: 058
     Dates: start: 201812

REACTIONS (3)
  - Administration site pain [Recovered/Resolved]
  - Blood glucose abnormal [Not Recovered/Not Resolved]
  - Device malfunction [Unknown]
